FAERS Safety Report 14551884 (Version 6)
Quarter: 2022Q1

REPORT INFORMATION
  Report Type: Spontaneous
  Country: US (occurrence: US)
  Receive Date: 20180220
  Receipt Date: 20220104
  Transmission Date: 20220423
  Serious: Yes (Other)
  Sender: FDA-Public Use
  Company Number: US-PFIZER INC-2018070804

PATIENT
  Age: 69 Year
  Sex: Female
  Weight: 73 kg

DRUGS (6)
  1. XELJANZ [Suspect]
     Active Substance: TOFACITINIB CITRATE
     Indication: Rheumatoid arthritis
     Dosage: 5 MG, 2X/DAY
     Route: 048
     Dates: start: 2015
  2. XELJANZ [Suspect]
     Active Substance: TOFACITINIB CITRATE
     Dosage: 5 MG, 2X/DAY
     Route: 048
     Dates: start: 201611
  3. LISINOPRIL [Concomitant]
     Active Substance: LISINOPRIL
     Indication: Hypertension
     Dosage: 10 MG, 2X/DAY
     Route: 048
  4. PRAVASTATIN SODIUM [Concomitant]
     Active Substance: PRAVASTATIN SODIUM
     Indication: Blood cholesterol abnormal
     Dosage: 20 MG, 1X/DAY
     Route: 048
  5. SULFASALAZINE [Concomitant]
     Active Substance: SULFASALAZINE
     Indication: Arthritis
     Dosage: 500 MG, 2X/DAY
     Route: 048
  6. SE TAN PLUS [Concomitant]
     Indication: Mineral supplementation
     Dosage: 1 DF, DAILY
     Route: 048

REACTIONS (9)
  - COVID-19 [Unknown]
  - Gait disturbance [Recovered/Resolved]
  - Infection [Recovered/Resolved]
  - Illness [Unknown]
  - Bronchitis [Unknown]
  - Condition aggravated [Unknown]
  - Hypersensitivity [Unknown]
  - Rhinitis allergic [Unknown]
  - Seasonal allergy [Unknown]
